FAERS Safety Report 4877537-4 (Version None)
Quarter: 2006Q1

REPORT INFORMATION
  Report Type: 
  Country: None (occurrence: None)
  Receive Date: 20060109
  Receipt Date: 20051227
  Transmission Date: 20060701
  Serious: Yes (Hospitalization)
  Sender: FDA-Public Use
  Company Number: 2005JP002255

PATIENT
  Age: 11 Year
  Sex: Female
  Weight: 40.8 kg

DRUGS (11)
  1. PROGRAF [Suspect]
     Indication: BONE MARROW TRANSPLANT
     Dosage: SEE IMAGE
     Route: 042
     Dates: start: 20040620, end: 20040624
  2. PROGRAF [Suspect]
     Indication: BONE MARROW TRANSPLANT
     Dosage: SEE IMAGE
     Route: 042
     Dates: start: 20040625, end: 20040627
  3. PROGRAF [Suspect]
     Indication: BONE MARROW TRANSPLANT
     Dosage: SEE IMAGE
     Route: 042
     Dates: start: 20040629, end: 20040720
  4. PROGRAF [Suspect]
     Indication: BONE MARROW TRANSPLANT
     Dosage: SEE IMAGE
     Route: 042
     Dates: start: 20040721, end: 20040723
  5. PROGRAF [Suspect]
     Indication: BONE MARROW TRANSPLANT
     Dosage: SEE IMAGE
     Route: 042
     Dates: start: 20040725
  6. METHOTREXATE [Suspect]
     Indication: BONE MARROW TRANSPLANT
     Dosage: SEE IMAGE
     Route: 042
     Dates: start: 20040624, end: 20040624
  7. METHOTREXATE [Suspect]
     Indication: BONE MARROW TRANSPLANT
     Dosage: SEE IMAGE
     Route: 042
     Dates: start: 20040622, end: 20040627
  8. METHOTREXATE [Suspect]
     Indication: BONE MARROW TRANSPLANT
     Dosage: SEE IMAGE
     Route: 042
     Dates: start: 20040627, end: 20040627
  9. FLUDARABINE PHOSPHATE [Suspect]
     Indication: CHRONIC MYELOID LEUKAEMIA
     Dosage: 40 MG, UID/QD, IV NOS
     Route: 042
     Dates: start: 20040615, end: 20040619
  10. ALKERAN (MELPHALAN) INJECTION [Suspect]
     Indication: CHRONIC MYELOID LEUKAEMIA
     Dosage: 115 MG, UID/QD, IV NOS
     Route: 042
     Dates: start: 20040614, end: 20040615
  11. ZETBULIN (ANTILYMPHOCYTE IMMUNOGLOBULIN (RABBIT)) INJECTION [Suspect]
     Indication: BONE MARROW TRANSPLANT
     Dosage: 200 MG, UID/QD, IV NOS
     Route: 042
     Dates: start: 20040617, end: 20040620

REACTIONS (9)
  - COMPLICATIONS OF TRANSPLANT SURGERY [None]
  - CONVULSION [None]
  - EPSTEIN-BARR VIRUS INFECTION [None]
  - HERPES ZOSTER [None]
  - HYPERTENSION [None]
  - LYMPHOPROLIFERATIVE DISORDER [None]
  - RASH [None]
  - REVERSIBLE POSTERIOR LEUKOENCEPHALOPATHY SYNDROME [None]
  - SCAB [None]
